FAERS Safety Report 13304442 (Version 1)
Quarter: 2017Q1

REPORT INFORMATION
  Report Type: Report from Study
  Country: US (occurrence: US)
  Receive Date: 20170308
  Receipt Date: 20170308
  Transmission Date: 20170428
  Serious: Yes (Other)
  Sender: FDA-Public Use
  Company Number: US-ROCHE-1355529

PATIENT

DRUGS (5)
  1. 5-FU [Suspect]
     Active Substance: FLUOROURACIL
     Dosage: OVER 46 HOURS
     Route: 041
  2. BEVACIZUMAB [Suspect]
     Active Substance: BEVACIZUMAB
     Indication: COLORECTAL CANCER METASTATIC
     Dosage: ON DAY 3, AND ON DAY 15 (BEFORE IRINOTECAN), THEN EVERY 2 WEEKS
     Route: 042
  3. IRINOTECAN [Suspect]
     Active Substance: IRINOTECAN
     Indication: COLORECTAL CANCER METASTATIC
     Route: 042
  4. LEUCOVORIN. [Suspect]
     Active Substance: LEUCOVORIN
     Indication: COLORECTAL CANCER METASTATIC
     Route: 042
  5. 5-FU [Suspect]
     Active Substance: FLUOROURACIL
     Indication: COLORECTAL CANCER METASTATIC
     Route: 040

REACTIONS (12)
  - Arrhythmia [Unknown]
  - Anaemia [Unknown]
  - Leukopenia [Unknown]
  - Febrile neutropenia [Unknown]
  - Diarrhoea [Unknown]
  - Nausea [Unknown]
  - Neutropenic sepsis [Unknown]
  - Neutropenia [Unknown]
  - Alopecia [Unknown]
  - Mucosal inflammation [Unknown]
  - Vomiting [Unknown]
  - Pain [Unknown]
